FAERS Safety Report 10041557 (Version 2)
Quarter: 2014Q2

REPORT INFORMATION
  Report Type: Spontaneous
  Country: DE (occurrence: DE)
  Receive Date: 20140327
  Receipt Date: 20140417
  Transmission Date: 20141212
  Serious: Yes (Hospitalization)
  Sender: FDA-Public Use
  Company Number: DE-NOVOPROD-403774

PATIENT
  Age: 51 Year
  Sex: Male
  Weight: 92 kg

DRUGS (14)
  1. VICTOZA [Suspect]
     Indication: TYPE 2 DIABETES MELLITUS
     Dosage: UNK
     Route: 065
     Dates: start: 201005, end: 201006
  2. VICTOZA [Suspect]
     Dosage: UNK
     Route: 065
     Dates: start: 20140113, end: 20140118
  3. METFORMIN [Suspect]
     Indication: TYPE 2 DIABETES MELLITUS
     Dosage: UNK
     Route: 048
     Dates: start: 201006
  4. METFORMIN [Suspect]
     Dosage: 500 MG, BID
     Route: 048
     Dates: end: 20140112
  5. METFORMIN [Suspect]
     Dosage: 500 MG, BID
     Route: 048
     Dates: start: 20140205
  6. SITAGLIPTIN [Suspect]
     Indication: TYPE 2 DIABETES MELLITUS
     Dosage: UNK
     Route: 048
     Dates: start: 201006, end: 201401
  7. NOVORAPID [Concomitant]
     Indication: TYPE 2 DIABETES MELLITUS
     Dosage: 52 IE, QD (24 IE- MORNING, 10 IE- MID DAY AND 18 IE - EVENING)
     Route: 065
     Dates: start: 20140123, end: 20140204
  8. NOVORAPID [Concomitant]
     Dosage: 44 IE, QD (18 IE- MORNING, 10 IE- MID DAY AND 16 IE-EVENING)
     Route: 065
     Dates: start: 20140205
  9. LEVEMIR [Concomitant]
     Indication: TYPE 2 DIABETES MELLITUS
     Dosage: 16 IE, QD (8 IE - MORNING AND 8 IE - EVENING)
     Route: 065
     Dates: end: 20140204
  10. LEVEMIR [Concomitant]
     Dosage: 20 IE, QD (10 IE - MORNING AND 10 IE- EVENING)
     Route: 065
     Dates: start: 20140205
  11. L-THYROXIN [Concomitant]
     Indication: THYROID HORMONE REPLACEMENT THERAPY
     Dosage: 175 UG, QD
     Route: 065
  12. RAMIPRIL [Concomitant]
     Dosage: 5 MG, BID
     Route: 065
  13. AMLODIPIN                          /00972401/ [Concomitant]
     Dosage: 5 MG, QD
     Route: 065
  14. HCT [Concomitant]
     Dosage: 25 MG, (0.5-0-0)
     Route: 065

REACTIONS (2)
  - Pancreatic pseudocyst [Unknown]
  - Metabolic disorder [Recovered/Resolved]
